FAERS Safety Report 4569438-6 (Version None)
Quarter: 2005Q1

REPORT INFORMATION
  Report Type: 
  Country: None (occurrence: None)
  Receive Date: 20050118
  Receipt Date: 20040127
  Transmission Date: 20050727
  Serious: Yes (Other)
  Sender: FDA-Public Use
  Company Number: HQWYE612528JAN04

PATIENT
  Age: 50 Year
  Sex: Female
  Weight: 51.73 kg

DRUGS (2)
  1. PREMPRO [Suspect]
     Indication: MENOPAUSE
     Dosage: 0.45 MG/1.5MG TABLET DAILY, ORAL
     Route: 048
     Dates: start: 20040126
  2. UNSPECIFIED VITAMINS (UNSPECIFIED VITAMINS) [Concomitant]

REACTIONS (3)
  - ERYTHEMA [None]
  - FLUSHING [None]
  - PRURITUS GENERALISED [None]
